FAERS Safety Report 20997788 (Version 10)
Quarter: 2022Q4

REPORT INFORMATION
  Report Type: Report from Study
  Country: US (occurrence: None)
  Receive Date: 20220623
  Receipt Date: 20221114
  Transmission Date: 20230113
  Serious: Yes (Other)
  Sender: FDA-Public Use
  Company Number: US-ROCHE-3107464

PATIENT
  Age: 61 Year
  Sex: Female
  Weight: 115 kg

DRUGS (23)
  1. RANIBIZUMAB [Suspect]
     Active Substance: RANIBIZUMAB
     Indication: Diabetic retinal oedema
     Dosage: DOSE OF STUDY DRUG FIRST ADMINISTERED 10 MG/ML?DATE OF MOST RECENT DOSE 100MG/ML OF STUDY DRUG PRIO
     Route: 050
     Dates: start: 20201214
  2. RANIBIZUMAB [Suspect]
     Active Substance: RANIBIZUMAB
  3. RANIBIZUMAB [Suspect]
     Active Substance: RANIBIZUMAB
  4. RANIBIZUMAB [Suspect]
     Active Substance: RANIBIZUMAB
  5. RANIBIZUMAB [Suspect]
     Active Substance: RANIBIZUMAB
  6. METFORMIN [Concomitant]
     Active Substance: METFORMIN HYDROCHLORIDE
     Indication: Diabetes mellitus
     Dates: start: 2015
  7. HYDROCHLOROTHIAZIDE [Concomitant]
     Active Substance: HYDROCHLOROTHIAZIDE
     Indication: Hypertension
     Dates: start: 2015
  8. LANTUS [Concomitant]
     Active Substance: INSULIN GLARGINE
     Indication: Diabetes mellitus
     Dates: start: 2019
  9. LEVOTHYROXINE SODIUM [Concomitant]
     Active Substance: LEVOTHYROXINE SODIUM
     Indication: Hypothyroidism
     Dates: start: 2000
  10. OLMESARTAN [Concomitant]
     Active Substance: OLMESARTAN
     Indication: Hypertension
     Dates: start: 2020
  11. GLYBURIDE [Concomitant]
     Active Substance: GLYBURIDE
     Indication: Diabetes mellitus
  12. TRADJENTA [Concomitant]
     Active Substance: LINAGLIPTIN
     Indication: Type 2 diabetes mellitus
     Route: 048
     Dates: start: 20220108
  13. XANAX [Concomitant]
     Active Substance: ALPRAZOLAM
     Indication: Anxiety
     Dosage: DRUG DOSE FIRST ADMINISTERED IS 0.5 OTHER
     Route: 048
  14. OFLOXACIN [Concomitant]
     Active Substance: OFLOXACIN
     Route: 047
     Dates: start: 20220502, end: 20220507
  15. OFLOXACIN [Concomitant]
     Active Substance: OFLOXACIN
     Dates: start: 20220525, end: 20220530
  16. LUCENTIS [Concomitant]
     Active Substance: RANIBIZUMAB
     Indication: Diabetic retinal oedema
     Route: 050
     Dates: start: 20200228
  17. LUCENTIS [Concomitant]
     Active Substance: RANIBIZUMAB
     Route: 050
     Dates: start: 20220802, end: 20220802
  18. LUCENTIS [Concomitant]
     Active Substance: RANIBIZUMAB
     Route: 050
     Dates: start: 20221024, end: 20221024
  19. APIXABAN [Concomitant]
     Active Substance: APIXABAN
     Indication: Atrial fibrillation
     Dates: start: 20220326
  20. FUROSEMIDE [Concomitant]
     Active Substance: FUROSEMIDE
     Indication: Chronic left ventricular failure
     Route: 048
     Dates: start: 20220307
  21. ASPIRIN [Concomitant]
     Active Substance: ASPIRIN
     Dates: start: 20220109
  22. AMLODIPINE [Concomitant]
     Active Substance: AMLODIPINE BESYLATE
     Indication: Hypertension
     Dates: start: 2020
  23. RANIBIZUMAB [Concomitant]
     Active Substance: RANIBIZUMAB
     Dosage: DOSE OF STUDY DRUG FIRST ADMINISTERED 6 MG/ML. FELLOW EYE TREATMENT
     Route: 050
     Dates: start: 20220802

REACTIONS (2)
  - Device issue [Unknown]
  - No adverse event [Unknown]

NARRATIVE: CASE EVENT DATE: 20220526
